FAERS Safety Report 6717312-9 (Version None)
Quarter: 2010Q2

REPORT INFORMATION
  Report Type: 
  Country: None (occurrence: None)
  Receive Date: 20100510
  Receipt Date: 20100428
  Transmission Date: 20101027
  Serious: Yes (Other)
  Sender: FDA-Public Use
  Company Number: US-SANOFI-AVENTIS-2010SA024606

PATIENT
  Age: 70 Year
  Sex: Male

DRUGS (8)
  1. MULTAQ [Suspect]
     Indication: ATRIAL FIBRILLATION
     Route: 048
     Dates: start: 20100305, end: 20100401
  2. PREDNISONE [Concomitant]
  3. CELEBREX [Concomitant]
  4. AVODART [Concomitant]
  5. FENOFIBRATE [Concomitant]
  6. COUMADIN [Concomitant]
  7. DIGOXIN [Concomitant]
  8. FISH OIL [Concomitant]

REACTIONS (1)
  - HEPATOCELLULAR INJURY [None]
